FAERS Safety Report 12843370 (Version 2)
Quarter: 2016Q4

REPORT INFORMATION
  Report Type: Spontaneous
  Country: US (occurrence: US)
  Receive Date: 20161013
  Receipt Date: 20161102
  Transmission Date: 20170207
  Serious: No
  Sender: FDA-Public Use
  Company Number: US-ACTAVIS-2016-09959

PATIENT
  Sex: Female
  Weight: 86.17 kg

DRUGS (5)
  1. GABAPENTIN (AELLC) [Suspect]
     Active Substance: GABAPENTIN
     Indication: NEUROPATHY PERIPHERAL
     Dosage: 600 MG, TID
     Route: 048
  2. GABAPENTIN (AELLC) [Suspect]
     Active Substance: GABAPENTIN
     Indication: NEURALGIA
  3. GABAPENTIN (AELLC) [Suspect]
     Active Substance: GABAPENTIN
     Indication: NEUROPATHY PERIPHERAL
     Dosage: ^THE HIGHEST DOSE^
     Route: 065
  4. GABAPENTIN (AELLC) [Suspect]
     Active Substance: GABAPENTIN
     Indication: BURNING SENSATION
  5. LYRICA [Concomitant]
     Active Substance: PREGABALIN
     Indication: NEURALGIA
     Dosage: 75 MG, TID
     Route: 065

REACTIONS (1)
  - Drug ineffective [Unknown]
